FAERS Safety Report 5624153-2 (Version None)
Quarter: 2008Q1

REPORT INFORMATION
  Report Type: 
  Country: None (occurrence: None)
  Receive Date: 20080213
  Receipt Date: 20080204
  Transmission Date: 20080703
  Serious: Yes (Other)
  Sender: FDA-Public Use
  Company Number: US-BAYER-200813061NA

PATIENT
  Sex: Female

DRUGS (6)
  1. CAMPATH [Suspect]
     Indication: CHRONIC LYMPHOCYTIC LEUKAEMIA
     Dosage: TOTAL DAILY DOSE: 30 MG
     Dates: start: 20071112, end: 20080130
  2. TYLENOL (CAPLET) [Concomitant]
     Indication: PREMEDICATION
  3. BENADRYL [Concomitant]
     Indication: PREMEDICATION
  4. BACTRIM [Concomitant]
     Indication: INFECTION PROPHYLAXIS
  5. ANTIVIRALS NOS [Concomitant]
     Indication: INFECTION PROPHYLAXIS
  6. RED BLOOD CELLS [Concomitant]
     Dosage: AS USED: 2 U
     Route: 042
     Dates: start: 20080121, end: 20080121

REACTIONS (3)
  - CAPILLARY LEAK SYNDROME [None]
  - DYSPNOEA [None]
  - FLUID RETENTION [None]
